FAERS Safety Report 18924455 (Version 1)
Quarter: 2021Q1

REPORT INFORMATION
  Report Type: Spontaneous
  Country: US (occurrence: US)
  Receive Date: 20210222
  Receipt Date: 20210222
  Transmission Date: 20210420
  Serious: No
  Sender: FDA-Public Use
  Company Number: US-TEVA-2019-US-1079096

PATIENT

DRUGS (1)
  1. CLONAZEPAM TEVA [Suspect]
     Active Substance: CLONAZEPAM
     Dosage: 0.5MG ORALLY DISINTEGRATING TABLET AT BED TIME
     Route: 048
     Dates: start: 20190512

REACTIONS (22)
  - Memory impairment [Unknown]
  - Emotional disorder [Unknown]
  - Tongue movement disturbance [Unknown]
  - Confusional state [Unknown]
  - Musculoskeletal chest pain [Unknown]
  - Eructation [Unknown]
  - Pain [Unknown]
  - Disturbance in attention [Unknown]
  - Constipation [Unknown]
  - Nuchal rigidity [Unknown]
  - Excessive eye blinking [Unknown]
  - Abnormal faeces [Unknown]
  - Aphasia [Unknown]
  - Muscle rigidity [Unknown]
  - Hyperhidrosis [Unknown]
  - Thinking abnormal [Unknown]
  - Visual impairment [Unknown]
  - Muscular weakness [Unknown]
  - Headache [Unknown]
  - Feeling jittery [Unknown]
  - Mood altered [Unknown]
  - Back pain [Unknown]
